FAERS Safety Report 9094432 (Version 1)
Quarter: 2013Q1

REPORT INFORMATION
  Report Type: Spontaneous
  Country: US (occurrence: US)
  Receive Date: 20130219
  Receipt Date: 20130219
  Transmission Date: 20140127
  Serious: No
  Sender: FDA-Public Use
  Company Number: US-009507513-1302USA007458

PATIENT
  Age: 54 Year
  Sex: Male

DRUGS (4)
  1. AZASITE [Suspect]
     Indication: CONJUNCTIVITIS
     Dosage: 1% ONE DROP IN EACH EYE TWICE DAILY FOR 2 DAYS
     Route: 031
     Dates: start: 20130201, end: 20130202
  2. AZASITE [Suspect]
     Dosage: 1% ONE DROP IN EACH EYE ONCE DAILY FOR FIVE DAY
     Route: 031
     Dates: start: 20130203
  3. LOTREL [Concomitant]
  4. WARFARIN [Concomitant]

REACTIONS (3)
  - Drug ineffective [Unknown]
  - Underdose [Unknown]
  - Drug dispensing error [Unknown]
